FAERS Safety Report 12791263 (Version 1)
Quarter: 2016Q3

REPORT INFORMATION
  Report Type: Spontaneous
  Country: US (occurrence: US)
  Receive Date: 20160929
  Receipt Date: 20160929
  Transmission Date: 20161109
  Serious: No
  Sender: FDA-Public Use
  Company Number: US-BAYER-2016-180275

PATIENT
  Sex: Male

DRUGS (2)
  1. ALEVE [Suspect]
     Active Substance: NAPROXEN SODIUM
     Indication: ANALGESIC THERAPY
     Dosage: 1 DF, ONCE
     Route: 048
     Dates: start: 20160914, end: 20160914
  2. ALEVE [Suspect]
     Active Substance: NAPROXEN SODIUM
     Indication: HEADACHE

REACTIONS (1)
  - Drug administration error [Recovered/Resolved]

NARRATIVE: CASE EVENT DATE: 20160914
